FAERS Safety Report 5286435-6 (Version None)
Quarter: 2007Q2

REPORT INFORMATION
  Report Type: 
  Country: None (occurrence: None)
  Receive Date: 20070404
  Receipt Date: 20070330
  Transmission Date: 20071010
  Serious: No
  Sender: FDA-Public Use
  Company Number: 2006UW08319

PATIENT
  Sex: Male
  Weight: 109.1 kg

DRUGS (7)
  1. SEROQUEL [Suspect]
     Indication: BIPOLAR DISORDER
     Dosage: 300-600 MG
     Route: 048
     Dates: start: 19951001, end: 20030501
  2. ABILIFY [Concomitant]
  3. RISPERDAL [Concomitant]
  4. STELAZINE [Concomitant]
  5. THORAZINE [Concomitant]
  6. TRILAFON [Concomitant]
  7. METHADONE HCL [Concomitant]
     Dates: start: 19920101

REACTIONS (1)
  - DIABETES MELLITUS [None]
